FAERS Safety Report 17672780 (Version 2)
Quarter: 2020Q2

REPORT INFORMATION
  Report Type: Report from Study
  Country: None (occurrence: US)
  Receive Date: 20200416
  Receipt Date: 20200608
  Transmission Date: 20200713
  Serious: Yes (Other)
  Sender: FDA-Public Use
  Company Number: US-ABBVIE-20K-163-3323710-00

PATIENT
  Age: 67 Year
  Sex: Female

DRUGS (1)
  1. HUMIRA [Suspect]
     Active Substance: ADALIMUMAB
     Indication: RHEUMATOID ARTHRITIS
     Route: 058
     Dates: start: 20200218

REACTIONS (19)
  - Ankle deformity [Unknown]
  - Impaired self-care [Not Recovered/Not Resolved]
  - Dyspnoea [Unknown]
  - Discomfort [Not Recovered/Not Resolved]
  - Musculoskeletal stiffness [Unknown]
  - Joint swelling [Not Recovered/Not Resolved]
  - Seasonal allergy [Unknown]
  - Musculoskeletal pain [Unknown]
  - Intraocular pressure increased [Unknown]
  - Arthralgia [Not Recovered/Not Resolved]
  - Pain [Recovering/Resolving]
  - Fatigue [Unknown]
  - Gait disturbance [Not Recovered/Not Resolved]
  - Joint range of motion decreased [Unknown]
  - Rhinorrhoea [Not Recovered/Not Resolved]
  - Depression [Not Recovered/Not Resolved]
  - Joint stiffness [Not Recovered/Not Resolved]
  - Hip deformity [Unknown]
  - Gait disturbance [Unknown]

NARRATIVE: CASE EVENT DATE: 2020
